FAERS Safety Report 4716660-1 (Version None)
Quarter: 2005Q3

REPORT INFORMATION
  Report Type: 
  Country: None (occurrence: None)
  Receive Date: 20050718
  Receipt Date: 20050705
  Transmission Date: 20060218
  Serious: Yes (Hospitalization)
  Sender: FDA-Public Use
  Company Number: GXKR2005GR01297

PATIENT
  Age: 69 Year
  Sex: Female

DRUGS (2)
  1. CARVEDILOL [Suspect]
     Indication: HYPERTENSION
  2. FLUOXETINE [Suspect]

REACTIONS (6)
  - ANTINUCLEAR ANTIBODY POSITIVE [None]
  - DRUG INTERACTION INHIBITION [None]
  - LUNG DISORDER [None]
  - NEUTROPHILIA [None]
  - NORMOCHROMIC NORMOCYTIC ANAEMIA [None]
  - PNEUMONITIS [None]
